FAERS Safety Report 6718547-1 (Version None)
Quarter: 2010Q2

REPORT INFORMATION
  Report Type: 
  Country: None (occurrence: None)
  Receive Date: 20100503
  Receipt Date: 20100416
  Transmission Date: 20101027
  Serious: Yes (Hospitalization, Other)
  Sender: FDA-Public Use
  Company Number: 2010001602

PATIENT
  Age: 54 Year
  Sex: Male

DRUGS (3)
  1. ERLOTINIB HYDROCHLORIDE [Suspect]
     Indication: LARYNGEAL CANCER
     Dosage: 150 MG, QD, ORAL
     Route: 048
     Dates: start: 20100210, end: 20100401
  2. CISPLATIN [Suspect]
     Indication: LARYNGEAL CANCER
     Dosage: 100 MG/M2, INTRAVENOUS
     Route: 042
     Dates: start: 20100216, end: 20100401
  3. MAGIC MIX [Concomitant]

REACTIONS (2)
  - ANAEMIA [None]
  - RENAL FAILURE ACUTE [None]
